FAERS Safety Report 12407171 (Version 1)
Quarter: 2016Q2

REPORT INFORMATION
  Report Type: Spontaneous
  Country: US (occurrence: None)
  Receive Date: 20160525
  Receipt Date: 20160525
  Transmission Date: 20160815
  Serious: No
  Sender: FDA-Public Use
  Company Number: None

PATIENT
  Age: 51 Year
  Sex: Female
  Weight: 46.04 kg

DRUGS (1)
  1. OXYCODONE 5MG [Suspect]
     Active Substance: OXYCODONE
     Indication: PAIN
     Dosage: 5MG Q4H PRN ORAL
     Route: 048
     Dates: start: 20160416, end: 20160504

REACTIONS (2)
  - Insomnia [None]
  - Psychomotor hyperactivity [None]

NARRATIVE: CASE EVENT DATE: 20160504
